FAERS Safety Report 16541046 (Version 1)
Quarter: 2019Q3

REPORT INFORMATION
  Report Type: Spontaneous
  Country: US (occurrence: US)
  Receive Date: 20190708
  Receipt Date: 20190708
  Transmission Date: 20191004
  Serious: Yes (Hospitalization)
  Sender: FDA-Public Use
  Company Number: US-VERTEX PHARMACEUTICALS-2019-006202

PATIENT
  Age: 42 Year
  Sex: Male

DRUGS (27)
  1. ACETYLCYSTEIN [Concomitant]
     Active Substance: ACETYLCYSTEINE
  2. ADVAIR HFA [Concomitant]
     Active Substance: FLUTICASONE PROPIONATE\SALMETEROL XINAFOATE
  3. CAYSTON [Concomitant]
     Active Substance: AZTREONAM
  4. ACETAMIN [Concomitant]
     Active Substance: ACETAMINOPHEN
  5. MAGONATE [Concomitant]
     Active Substance: MAGNESIUM CARBONATE
  6. PULMOZYME [Concomitant]
     Active Substance: DORNASE ALFA
  7. ACIDOPHILUS/PECTIN [Concomitant]
  8. ASCORBIC ACID. [Concomitant]
     Active Substance: ASCORBIC ACID
  9. BETA CAROTENE [Concomitant]
  10. PROAIR HFA [Concomitant]
     Active Substance: ALBUTEROL SULFATE
  11. CALCIUM PLUS [CALCIUM] [Concomitant]
  12. MEPHYTON [Concomitant]
     Active Substance: PHYTONADIONE
  13. MIRTAZAPINE. [Concomitant]
     Active Substance: MIRTAZAPINE
  14. ALBUTEROL [SALBUTAMOL SULFATE] [Concomitant]
     Active Substance: ALBUTEROL SULFATE
  15. BOOST [Concomitant]
     Active Substance: DIETARY SUPPLEMENT
  16. MONTELUKAST [Concomitant]
     Active Substance: MONTELUKAST SODIUM
  17. NASONEX [Concomitant]
     Active Substance: MOMETASONE FUROATE
  18. PANTOPRAZOLE [Concomitant]
     Active Substance: PANTOPRAZOLE
  19. ALENDRONATE [Concomitant]
     Active Substance: ALENDRONATE SODIUM
  20. CIPROFLOXACIN. [Concomitant]
     Active Substance: CIPROFLOXACIN
  21. COLISTIMETHATE [COLISTIMETHATE SODIUM] [Concomitant]
  22. SODIUM CHLORIDE. [Concomitant]
     Active Substance: SODIUM CHLORIDE
  23. ORKAMBI [Suspect]
     Active Substance: IVACAFTOR\LUMACAFTOR
     Indication: CYSTIC FIBROSIS
     Dosage: 2 DOSAGE FORM, BID
     Route: 048
     Dates: start: 20180928
  24. ZOSYN [Suspect]
     Active Substance: PIPERACILLIN SODIUM\TAZOBACTAM SODIUM
     Indication: PRODUCT USED FOR UNKNOWN INDICATION
     Route: 065
  25. CLONAZEPAM. [Concomitant]
     Active Substance: CLONAZEPAM
  26. CREON [Concomitant]
     Active Substance: PANCRELIPASE AMYLASE\PANCRELIPASE LIPASE\PANCRELIPASE PROTEASE
  27. ESCITALOPRAM [Concomitant]
     Active Substance: ESCITALOPRAM OXALATE

REACTIONS (1)
  - Gastrointestinal disorder [Unknown]

NARRATIVE: CASE EVENT DATE: 201906
